FAERS Safety Report 9828047 (Version 1)
Quarter: 2013Q4

REPORT INFORMATION
  Report Type: Spontaneous
  Country: US (occurrence: None)
  Receive Date: 20131120
  Receipt Date: 20131120
  Transmission Date: 20140711
  Serious: Yes (Other)
  Sender: FDA-Public Use
  Company Number: 1902298

PATIENT
  Sex: Female

DRUGS (6)
  1. DOCETAXEL [Suspect]
     Indication: PRODUCT USED FOR UNKNOWN INDICATION
     Dosage: 160 MG MILLIGRAM{S) UNKNOWN, INTRAVENOUS
     Route: 042
  2. CYTOXAN [Suspect]
     Indication: PRODUCT USED FOR UNKNOWN INDICATION
     Dosage: UNKNOWN, UNKNOWN, THREE DOSES, LAST DOSE GIVEN ON 29AUG2013 (UUNKNOWN)
     Route: 041
     Dates: start: 20130829
  3. (NEULASTA) [Concomitant]
  4. (ZANTAC) [Concomitant]
  5. (BENADRYL) [Concomitant]
  6. PREDNISOLONE [Concomitant]

REACTIONS (2)
  - Anaphylactic reaction [None]
  - Skin reaction [None]
